FAERS Safety Report 5523664-8 (Version None)
Quarter: 2007Q4

REPORT INFORMATION
  Report Type: 
  Country: None (occurrence: None)
  Receive Date: 20071121
  Receipt Date: 20071113
  Transmission Date: 20080405
  Serious: Yes (Hospitalization)
  Sender: FDA-Public Use
  Company Number: US-GILEAD-2007-0012419

PATIENT
  Sex: Female
  Weight: 73 kg

DRUGS (11)
  1. AMBRISENTAN [Suspect]
     Indication: PULMONARY HYPERTENSION
     Dates: start: 20070301
  2. SILDENAFIL CITRATE [Concomitant]
     Indication: PULMONARY HYPERTENSION
     Dates: start: 20070414
  3. REMODULIN [Concomitant]
     Indication: PULMONARY HYPERTENSION
     Route: 058
     Dates: start: 20060818
  4. METOPROLOL [Concomitant]
     Indication: HYPERTENSION
     Route: 048
     Dates: start: 20070511
  5. METOPROLOL [Concomitant]
     Route: 048
     Dates: start: 20070227, end: 20070511
  6. ALLOPURINOL [Concomitant]
     Indication: GOUT
     Route: 048
     Dates: start: 20030601
  7. LASIX [Concomitant]
     Indication: RENAL FAILURE CHRONIC
     Route: 048
     Dates: start: 20030601
  8. VICODIN [Concomitant]
     Indication: ARTHRITIS
     Route: 048
     Dates: start: 20010101
  9. SPIRIVA [Concomitant]
     Indication: ASTHMA
     Route: 055
     Dates: start: 20020101
  10. COUMADIN [Concomitant]
     Indication: PULMONARY HYPERTENSION
     Route: 048
     Dates: start: 20060801, end: 20070507
  11. ADVAIR DISKUS 100/50 [Concomitant]
     Indication: ASTHMA
     Route: 055
     Dates: start: 20060101

REACTIONS (4)
  - BRONCHITIS [None]
  - DYSPNOEA [None]
  - FLUID OVERLOAD [None]
  - PLEURAL EFFUSION [None]
